FAERS Safety Report 13931144 (Version 1)
Quarter: 2017Q3

REPORT INFORMATION
  Report Type: Spontaneous
  Country: US (occurrence: US)
  Receive Date: 20170902
  Receipt Date: 20170902
  Transmission Date: 20171127
  Serious: Yes (Hospitalization, Other)
  Sender: FDA-Public Use
  Company Number: US-AMGEN-USASL2017131430

PATIENT
  Age: 4 Month
  Sex: Male

DRUGS (1)
  1. REPATHA [Suspect]
     Active Substance: EVOLOCUMAB
     Indication: EXPOSURE DURING PREGNANCY
     Dosage: 420 MG, QMO
     Route: 064
     Dates: start: 2016

REACTIONS (2)
  - Paternal exposure during pregnancy [Unknown]
  - Meconium aspiration syndrome [Unknown]

NARRATIVE: CASE EVENT DATE: 201704
